FAERS Safety Report 19508619 (Version 2)
Quarter: 2021Q3

REPORT INFORMATION
  Report Type: Spontaneous
  Country: KR (occurrence: KR)
  Receive Date: 20210708
  Receipt Date: 20210709
  Transmission Date: 20211014
  Serious: Yes (Hospitalization)
  Sender: FDA-Public Use
  Company Number: KR-ELI_LILLY_AND_COMPANY-KR202106015025

PATIENT
  Sex: Female

DRUGS (1)
  1. FORSTEO 250UG/ML [Suspect]
     Active Substance: TERIPARATIDE
     Indication: LUMBAR VERTEBRAL FRACTURE
     Dosage: 20 UG, DAILY
     Route: 058

REACTIONS (2)
  - Off label use [Unknown]
  - Upper limb fracture [Unknown]
